FAERS Safety Report 8595405-1 (Version None)
Quarter: 2012Q3

REPORT INFORMATION
  Report Type: 
  Country: None (occurrence: None)
  Receive Date: 20120815
  Receipt Date: 20120605
  Transmission Date: 20120928
  Serious: No
  Sender: FDA-Public Use
  Company Number: US-BRISTOL-MYERS SQUIBB COMPANY-16620114

PATIENT
  Age: 62 Year
  Sex: Female

DRUGS (3)
  1. ONGLYZA [Suspect]
     Indication: DIABETES MELLITUS
  2. AMARYL [Suspect]
     Indication: DIABETES MELLITUS
  3. INSULIN [Suspect]

REACTIONS (2)
  - BLOOD GLUCOSE INCREASED [None]
  - RASH [None]
